FAERS Safety Report 6838632-3 (Version None)
Quarter: 2010Q3

REPORT INFORMATION
  Report Type: 
  Country: None (occurrence: None)
  Receive Date: 20100713
  Receipt Date: 20070628
  Transmission Date: 20110219
  Serious: No
  Sender: FDA-Public Use
  Company Number: US-PFIZER INC-2007051185

PATIENT
  Sex: Female
  Weight: 90.7 kg

DRUGS (4)
  1. CHANTIX [Suspect]
     Indication: SMOKING CESSATION THERAPY
     Dates: start: 20070609
  2. LAMICTAL [Concomitant]
     Indication: BIPOLAR DISORDER
  3. ABILIFY [Concomitant]
     Indication: BIPOLAR DISORDER
  4. LITHIUM [Concomitant]
     Indication: BIPOLAR DISORDER

REACTIONS (4)
  - DIZZINESS [None]
  - FEELING HOT [None]
  - HYPERSOMNIA [None]
  - IRRITABILITY [None]
